FAERS Safety Report 9546616 (Version 2)
Quarter: 2013Q4

REPORT INFORMATION
  Report Type: Spontaneous
  Country: US (occurrence: US)
  Receive Date: 20130924
  Receipt Date: 20131025
  Transmission Date: 20140711
  Serious: No
  Sender: FDA-Public Use
  Company Number: US-009507513-1309USA005446

PATIENT
  Age: 25 Year
  Sex: Female
  Weight: 102.4 kg

DRUGS (3)
  1. NEXPLANON [Suspect]
     Indication: CONTRACEPTION
     Dosage: 68MG / ONE ROD EVERY THREE YEARS
     Route: 059
     Dates: start: 20130826, end: 20130904
  2. NEXPLANON [Suspect]
     Dosage: UNK
     Route: 059
     Dates: start: 20130904
  3. PROPRANOLOL HYDROCHLORIDE [Concomitant]
     Dosage: UNK

REACTIONS (4)
  - Implant site pain [Unknown]
  - Medical device complication [Recovered/Resolved with Sequelae]
  - Device kink [Recovered/Resolved with Sequelae]
  - Device dislocation [Recovered/Resolved with Sequelae]
